FAERS Safety Report 6701931-X (Version None)
Quarter: 2010Q2

REPORT INFORMATION
  Report Type: 
  Country: None (occurrence: None)
  Receive Date: 20100429
  Receipt Date: 20100419
  Transmission Date: 20101027
  Serious: Yes (Hospitalization, Other)
  Sender: FDA-Public Use
  Company Number: US-ROCHE-628570

PATIENT
  Sex: Female
  Weight: 70.8 kg

DRUGS (8)
  1. CAPECITABINE [Suspect]
     Dosage: 2000 MG IN THE MORNING AND 1500 MG IN THE EVENING.
     Route: 048
     Dates: start: 20080926, end: 20100325
  2. COUMADIN [Suspect]
     Indication: ANTICOAGULANT THERAPY
     Route: 065
     Dates: start: 20090101, end: 20090101
  3. LISINOPRIL VS HCTZ [Concomitant]
     Dosage: DOSE: 10/12.5
     Route: 048
  4. LORTAB [Concomitant]
     Indication: PAIN
     Route: 048
  5. VITAMIN B-12 [Concomitant]
     Route: 048
  6. METOPROLOL [Concomitant]
     Route: 048
  7. ZOCOR [Concomitant]
     Route: 048
  8. NITROGLYCERIN [Concomitant]
     Dosage: TAKEN PRN, DRUG REPORTED AS: NITROQUICK SL.
     Route: 058

REACTIONS (18)
  - ASTHENIA [None]
  - CONTUSION [None]
  - DEEP VEIN THROMBOSIS [None]
  - DIZZINESS [None]
  - DRUG TOXICITY [None]
  - DYSPNOEA [None]
  - FAECES DISCOLOURED [None]
  - FATIGUE [None]
  - FLATULENCE [None]
  - HYPOACUSIS [None]
  - LACRIMATION INCREASED [None]
  - MALIGNANT NEOPLASM PROGRESSION [None]
  - PALMAR-PLANTAR ERYTHRODYSAESTHESIA SYNDROME [None]
  - PARAESTHESIA [None]
  - PHOTOPHOBIA [None]
  - STOMATITIS [None]
  - URINARY INCONTINENCE [None]
  - VISION BLURRED [None]
